FAERS Safety Report 7004199-2 (Version None)
Quarter: 2010Q3

REPORT INFORMATION
  Report Type: 
  Country: None (occurrence: None)
  Receive Date: 20100920
  Receipt Date: 20100216
  Transmission Date: 20110219
  Serious: Yes (Hospitalization)
  Sender: FDA-Public Use
  Company Number: US-WYE-H13554310

PATIENT
  Sex: Female

DRUGS (3)
  1. PRISTIQ [Suspect]
     Route: 048
     Dates: end: 20100209
  2. METOPROLOL [Concomitant]
     Dosage: UNKNOWN
  3. CLONIDINE [Concomitant]
     Dosage: 0.1 MG DAILY AS NEEDED
     Route: 048

REACTIONS (2)
  - CONDITION AGGRAVATED [None]
  - HYPERTENSION [None]
